FAERS Safety Report 6421779-3 (Version None)
Quarter: 2009Q4

REPORT INFORMATION
  Report Type: 
  Country: None (occurrence: None)
  Receive Date: 20091030
  Receipt Date: 20091014
  Transmission Date: 20100525
  Serious: Yes (Disabling)
  Sender: FDA-Public Use
  Company Number: A0810830A

PATIENT
  Sex: Female
  Weight: 68.2 kg

DRUGS (3)
  1. VALTREX [Suspect]
     Indication: PROPHYLAXIS
     Dosage: 2000MG TWICE PER DAY
     Route: 065
     Dates: start: 20070101, end: 20090901
  2. ANAPROX DS [Concomitant]
     Indication: PAIN
     Dosage: 550MG AS REQUIRED
     Route: 065
     Dates: start: 20090226, end: 20090813
  3. FAMVIR [Concomitant]

REACTIONS (3)
  - ALOPECIA [None]
  - HAIR DISORDER [None]
  - MADAROSIS [None]
